FAERS Safety Report 8549356-9 (Version None)
Quarter: 2012Q3

REPORT INFORMATION
  Report Type: 
  Country: None (occurrence: None)
  Receive Date: 20120720
  Receipt Date: 20120720
  Transmission Date: 20120928
  Serious: Yes (Other)
  Sender: FDA-Public Use
  Company Number: None

PATIENT
  Age: 47 Year
  Sex: Female
  Weight: 61.6892 kg

DRUGS (1)
  1. GABAPENTIN [Suspect]
     Indication: COMPLEX REGIONAL PAIN SYNDROME
     Dosage: 600 MG 2X DAILY PO; 900 MG ONE TIME DAILY PO
     Route: 048
     Dates: start: 20110302, end: 20111125

REACTIONS (6)
  - AGITATION [None]
  - LIBIDO INCREASED [None]
  - PARTNER STRESS [None]
  - HOSTILITY [None]
  - PERSONALITY CHANGE [None]
  - EMOTIONAL DISORDER [None]
